FAERS Safety Report 8604296-1 (Version None)
Quarter: 2012Q3

REPORT INFORMATION
  Report Type: 
  Country: None (occurrence: None)
  Receive Date: 20120820
  Receipt Date: 20120809
  Transmission Date: 20120928
  Serious: Yes (Other)
  Sender: FDA-Public Use
  Company Number: US-JNJFOC-20120807949

PATIENT
  Age: 45 Year
  Sex: Female
  Weight: 90.7 kg

DRUGS (6)
  1. CAT'S CLAW [Concomitant]
     Route: 065
  2. IBUPROFEN [Suspect]
     Indication: HEADACHE
     Route: 065
     Dates: start: 19980101, end: 20120805
  3. FLONASE [Concomitant]
     Route: 065
  4. GABAPENTIN [Suspect]
     Indication: BACK PAIN
     Route: 048
     Dates: start: 20120717, end: 20120804
  5. OXYCODONE HCL [Concomitant]
     Route: 065
  6. GABAPENTIN [Suspect]
     Indication: HEADACHE
     Route: 048
     Dates: start: 20120717, end: 20120804

REACTIONS (12)
  - TINNITUS [None]
  - CHEST PAIN [None]
  - SWOLLEN TONGUE [None]
  - HYPERSENSITIVITY [None]
  - BACK PAIN [None]
  - SINUS HEADACHE [None]
  - INSOMNIA [None]
  - PHARYNGEAL OEDEMA [None]
  - OEDEMA PERIPHERAL [None]
  - HEADACHE [None]
  - FLUID RETENTION [None]
  - DYSPNOEA [None]
